FAERS Safety Report 17054067 (Version 4)
Quarter: 2020Q3

REPORT INFORMATION
  Report Type: Spontaneous
  Country: US (occurrence: US)
  Receive Date: 20191120
  Receipt Date: 20200720
  Transmission Date: 20201102
  Serious: No
  Sender: FDA-Public Use
  Company Number: US-PFIZER INC-2019503889

PATIENT
  Age: 65 Year
  Sex: Female
  Weight: 82.5 kg

DRUGS (4)
  1. XELJANZ XR [Suspect]
     Active Substance: TOFACITINIB CITRATE
     Indication: PSORIATIC ARTHROPATHY
  2. FOLIC ACID. [Concomitant]
     Active Substance: FOLIC ACID
     Dosage: UNK
  3. XELJANZ XR [Suspect]
     Active Substance: TOFACITINIB CITRATE
     Indication: RHEUMATOID ARTHRITIS
     Dosage: 11 MG, 1X/DAY
     Route: 048
  4. METHOTREXATE. [Concomitant]
     Active Substance: METHOTREXATE
     Dosage: UNK

REACTIONS (13)
  - Eczema [Unknown]
  - Visual impairment [Unknown]
  - Arthritis [Unknown]
  - Gait disturbance [Unknown]
  - Scab [Unknown]
  - Skin disorder [Not Recovered/Not Resolved]
  - Condition aggravated [Unknown]
  - Anaemia [Unknown]
  - Aphonia [Unknown]
  - Pruritus [Not Recovered/Not Resolved]
  - Malaise [Unknown]
  - Skin lesion [Not Recovered/Not Resolved]
  - Swelling [Unknown]
